FAERS Safety Report 4448135-1 (Version None)
Quarter: 2004Q3

REPORT INFORMATION
  Report Type: 
  Country: None (occurrence: None)
  Receive Date: 20040913
  Receipt Date: 20040909
  Transmission Date: 20050211
  Serious: Yes (Life-Threatening, Hospitalization)
  Sender: FDA-Public Use
  Company Number: PHBS2004AR11965

PATIENT
  Age: 74 Year
  Sex: Female

DRUGS (1)
  1. DIOVAN [Suspect]
     Dosage: 80 MG, QD

REACTIONS (5)
  - AORTIC VALVE STENOSIS [None]
  - CONDITION AGGRAVATED [None]
  - LUNG DISORDER [None]
  - SEPTIC SHOCK [None]
  - VALVULOPLASTY CARDIAC [None]
